FAERS Safety Report 7149591-0 (Version None)
Quarter: 2010Q4

REPORT INFORMATION
  Report Type: 
  Country: None (occurrence: None)
  Receive Date: 20101209
  Receipt Date: 20101201
  Transmission Date: 20110411
  Serious: Yes (Disabling, Other)
  Sender: FDA-Public Use
  Company Number: SA-MPIJNJ-2010-05745

PATIENT

DRUGS (4)
  1. VELCADE [Suspect]
     Indication: MULTIPLE MYELOMA
     Dosage: 1.3 MG/M2, 1/WEEK
     Route: 040
     Dates: start: 20090205, end: 20090219
  2. ENALAPRIL [Concomitant]
     Indication: HYPERTENSION
  3. ATENOLOL [Concomitant]
     Indication: HYPERTENSION
  4. LATANOPROST [Concomitant]
     Indication: OPEN ANGLE GLAUCOMA
     Route: 047

REACTIONS (1)
  - IIIRD NERVE PARALYSIS [None]
